FAERS Safety Report 24235750 (Version 1)
Quarter: 2024Q3

REPORT INFORMATION
  Report Type: Spontaneous
  Country: FI (occurrence: FI)
  Receive Date: 20240822
  Receipt Date: 20240822
  Transmission Date: 20241017
  Serious: Yes (Hospitalization, Other)
  Sender: MERCK
  Company Number: None

PATIENT
  Age: 64 Year
  Sex: Female

DRUGS (3)
  1. KEYTRUDA [Suspect]
     Active Substance: PEMBROLIZUMAB
     Indication: Triple negative breast cancer
     Dosage: 200 MILLIGRAM
     Route: 042
     Dates: start: 20240405, end: 20240703
  2. DOXORUBICIN [Concomitant]
     Active Substance: DOXORUBICIN
     Indication: Triple negative breast cancer
     Dosage: UNK
     Route: 042
     Dates: start: 20240405
  3. CYCLOPHOSPHAMIDE [Concomitant]
     Active Substance: CYCLOPHOSPHAMIDE
     Indication: Triple negative breast cancer
     Dosage: UNK
     Route: 042
     Dates: start: 20240405

REACTIONS (6)
  - Pancytopenia [Not Recovered/Not Resolved]
  - Dialysis [Not Recovered/Not Resolved]
  - Hepatic failure [Not Recovered/Not Resolved]
  - Haemolytic anaemia [Not Recovered/Not Resolved]
  - Renal injury [Not Recovered/Not Resolved]
  - Haemophagocytic lymphohistiocytosis [Not Recovered/Not Resolved]

NARRATIVE: CASE EVENT DATE: 20240701
